FAERS Safety Report 7523324-8 (Version None)
Quarter: 2011Q2

REPORT INFORMATION
  Report Type: 
  Country: None (occurrence: None)
  Receive Date: 20110525
  Receipt Date: 20110512
  Transmission Date: 20111010
  Serious: Yes (Other)
  Sender: FDA-Public Use
  Company Number: 2011MA005933

PATIENT
  Age: 83 Year
  Sex: Male

DRUGS (2)
  1. SPIRONOLACTONE [Suspect]
     Indication: CARDIAC FAILURE CONGESTIVE
     Dosage: 50 MG
  2. TRIMETHOPRIM [Suspect]
     Indication: URINARY TRACT INFECTION
     Dosage: 100 MG;BID;PO
     Route: 048
     Dates: start: 20110423, end: 20110427

REACTIONS (2)
  - HYPONATRAEMIA [None]
  - POTENTIATING DRUG INTERACTION [None]
